FAERS Safety Report 15207576 (Version 1)
Quarter: 2018Q3

REPORT INFORMATION
  Report Type: Spontaneous
  Country: FR (occurrence: FR)
  Receive Date: 20180727
  Receipt Date: 20180727
  Transmission Date: 20181010
  Serious: Yes (Hospitalization)
  Sender: FDA-Public Use
  Company Number: FR-AUROBINDO-AUR-APL-2018-036942

PATIENT
  Age: 62 Year
  Sex: Female
  Weight: 91 kg

DRUGS (2)
  1. CEFTAZIDIME MYLAN [Concomitant]
     Active Substance: CEFTAZIDIME
     Indication: PSEUDOMONAS INFECTION
     Dosage: UNK
     Route: 042
     Dates: start: 20180314, end: 20180424
  2. CIPROFLOXACIN HYDROCHLORIDE ARROW FILM?COATED TABLET 500MG [Suspect]
     Active Substance: CIPROFLOXACIN HYDROCHLORIDE
     Indication: PSEUDOMONAS INFECTION
     Dosage: 1000 MEGABECQUEREL, DAILY
     Route: 048
     Dates: start: 20180314, end: 20180419

REACTIONS (1)
  - Tendon disorder [Recovered/Resolved]

NARRATIVE: CASE EVENT DATE: 20180419
